FAERS Safety Report 6486503-7 (Version None)
Quarter: 2009Q4

REPORT INFORMATION
  Report Type: 
  Country: None (occurrence: None)
  Receive Date: 20091210
  Receipt Date: 20091130
  Transmission Date: 20100525
  Serious: No
  Sender: FDA-Public Use
  Company Number: US-JNJFOC-20091200843

PATIENT
  Sex: Female
  Weight: 104.33 kg

DRUGS (2)
  1. DURAGESIC-100 [Suspect]
     Indication: BACK PAIN
     Route: 062
  2. TRIAMTERENE [Concomitant]
     Route: 048

REACTIONS (4)
  - BEDRIDDEN [None]
  - DRUG INEFFECTIVE [None]
  - MOVEMENT DISORDER [None]
  - WRONG TECHNIQUE IN DRUG USAGE PROCESS [None]
